FAERS Safety Report 19092955 (Version 2)
Quarter: 2022Q1

REPORT INFORMATION
  Report Type: Other
  Country: DE (occurrence: None)
  Receive Date: 20210405
  Receipt Date: 20220207
  Transmission Date: 20220424
  Serious: Yes (Hospitalization)
  Sender: FDA-Public Use
  Company Number: DE-ROCHE-2797766

PATIENT
  Age: 26 Year
  Sex: Female
  Weight: 61 kg

DRUGS (15)
  1. OCRELIZUMAB [Suspect]
     Active Substance: OCRELIZUMAB
     Indication: Relapsing-remitting multiple sclerosis
     Route: 042
     Dates: start: 20200213, end: 20200227
  2. OCRELIZUMAB [Suspect]
     Active Substance: OCRELIZUMAB
     Route: 042
     Dates: start: 20210311, end: 20210311
  3. CORTISONE [Concomitant]
     Active Substance: CORTISONE
     Dates: start: 20200124, end: 20200128
  4. CORTISONE [Concomitant]
     Active Substance: CORTISONE
     Dates: start: 20200213, end: 20200213
  5. CORTISONE [Concomitant]
     Active Substance: CORTISONE
     Dates: start: 20200227, end: 20200227
  6. CLEMASTINE FUMARATE [Concomitant]
     Active Substance: CLEMASTINE FUMARATE
     Dates: start: 20200213, end: 20200213
  7. CLEMASTINE FUMARATE [Concomitant]
     Active Substance: CLEMASTINE FUMARATE
     Dates: start: 20200227, end: 20200227
  8. FOLIC ACID [Concomitant]
     Active Substance: FOLIC ACID
     Dates: start: 20191001, end: 20200416
  9. FOLIC ACID [Concomitant]
     Active Substance: FOLIC ACID
     Dates: start: 20200417, end: 20200614
  10. FOLIC ACID [Concomitant]
     Active Substance: FOLIC ACID
     Dates: start: 20200615, end: 20200702
  11. FOLIC ACID [Concomitant]
     Active Substance: FOLIC ACID
     Dates: start: 20200703, end: 20210105
  12. VITAMIN B12 [Concomitant]
     Active Substance: CYANOCOBALAMIN
     Dates: start: 20191017, end: 20200619
  13. AMOXICILLIN\CLAVULANIC ACID [Concomitant]
     Active Substance: AMOXICILLIN\CLAVULANIC ACID
     Dates: start: 20200213, end: 20200218
  14. MAGNESIUM [Concomitant]
     Active Substance: MAGNESIUM
     Indication: Prophylaxis
     Dates: start: 20200525, end: 20201115
  15. DOTAREM [Concomitant]
     Active Substance: GADOTERATE MEGLUMINE

REACTIONS (2)
  - Gastroenteritis [Recovered/Resolved]
  - Maternal exposure before pregnancy [Unknown]

NARRATIVE: CASE EVENT DATE: 20210222
